FAERS Safety Report 6993629-8 (Version None)
Quarter: 2010Q3

REPORT INFORMATION
  Report Type: 
  Country: None (occurrence: None)
  Receive Date: 20100917
  Receipt Date: 20070824
  Transmission Date: 20110219
  Serious: Yes (Other)
  Sender: FDA-Public Use
  Company Number: US-ASTRAZENECA-2006UW10763

PATIENT
  Age: 4360 Day
  Sex: Male
  Weight: 137 kg

DRUGS (18)
  1. SEROQUEL [Suspect]
     Indication: AUTISM
     Route: 048
     Dates: start: 20000101
  2. SEROQUEL [Suspect]
     Indication: AGGRESSION
     Route: 048
     Dates: start: 20000101
  3. SEROQUEL [Suspect]
     Route: 048
     Dates: start: 20000101
  4. SEROQUEL [Suspect]
     Indication: AFFECTIVE DISORDER
     Route: 048
     Dates: start: 20000101
  5. SEROQUEL [Suspect]
     Indication: PSYCHOTIC DISORDER
     Route: 048
     Dates: start: 20000101
  6. SEROQUEL [Suspect]
     Indication: IMPULSE-CONTROL DISORDER
     Route: 048
     Dates: start: 20000101
  7. SEROQUEL [Suspect]
     Indication: MANIA
     Route: 048
     Dates: start: 20000101
  8. SEROQUEL [Suspect]
     Dosage: 100-1000 MG
     Route: 048
     Dates: start: 20010124
  9. SEROQUEL [Suspect]
     Dosage: 100-1000 MG
     Route: 048
     Dates: start: 20010124
  10. SEROQUEL [Suspect]
     Dosage: 100-1000 MG
     Route: 048
     Dates: start: 20010124
  11. SEROQUEL [Suspect]
     Dosage: 100-1000 MG
     Route: 048
     Dates: start: 20010124
  12. SEROQUEL [Suspect]
     Dosage: 100-1000 MG
     Route: 048
     Dates: start: 20010124
  13. SEROQUEL [Suspect]
     Dosage: 100-1000 MG
     Route: 048
     Dates: start: 20010124
  14. SEROQUEL [Suspect]
     Dosage: 100-1000 MG
     Route: 048
     Dates: start: 20010124
  15. ZYPREXA [Suspect]
     Dates: start: 20010124
  16. ZYPREXA [Suspect]
     Dates: start: 20020213
  17. ABILIFY [Concomitant]
  18. GLUCOPHAGE [Concomitant]
     Route: 048
     Dates: start: 20030314

REACTIONS (5)
  - BLOOD GLUCOSE INCREASED [None]
  - DIABETES MELLITUS [None]
  - DIABETES MELLITUS INADEQUATE CONTROL [None]
  - HYPERGLYCAEMIA [None]
  - TYPE 2 DIABETES MELLITUS [None]
